FAERS Safety Report 4348061-2 (Version None)
Quarter: 2004Q2

REPORT INFORMATION
  Report Type: 
  Country: None (occurrence: None)
  Receive Date: 20040422
  Receipt Date: 20040408
  Transmission Date: 20050107
  Serious: Yes (Hospitalization)
  Sender: FDA-Public Use
  Company Number: A0411071A

PATIENT
  Age: 49 Year
  Sex: Female
  Weight: 64.3654 kg

DRUGS (4)
  1. PAXIL [Suspect]
     Indication: DEPRESSION
     Dosage: 20 MG/PER DAY/ORAL
     Route: 048
     Dates: start: 19980303, end: 19980324
  2. DALMANE [Concomitant]
  3. PROPRANOLOL HYDROCHLORIDE [Concomitant]
  4. ZOLPIDEM TARTRATE [Concomitant]

REACTIONS (42)
  - ABASIA [None]
  - ABNORMAL BEHAVIOUR [None]
  - ACCIDENT [None]
  - ACETABULUM FRACTURE [None]
  - ANXIETY [None]
  - ARTHRALGIA [None]
  - ARTHROPATHY [None]
  - BACTERAEMIA [None]
  - CLAVICLE FRACTURE [None]
  - CRYING [None]
  - DRUG WITHDRAWAL SYNDROME [None]
  - DYSARTHRIA [None]
  - EOSINOPHILIA [None]
  - GASTROOESOPHAGEAL REFLUX DISEASE [None]
  - GENERAL PHYSICAL HEALTH DETERIORATION [None]
  - HAEMOPHILUS INFECTION [None]
  - HAEMOTHORAX [None]
  - HEMIPLEGIA [None]
  - IMPAIRED DRIVING ABILITY [None]
  - INSOMNIA [None]
  - INTRAVENTRICULAR HAEMORRHAGE [None]
  - IRRITABLE BOWEL SYNDROME [None]
  - LIVER FUNCTION TEST ABNORMAL [None]
  - LUNG INFILTRATION [None]
  - MUSCLE CRAMP [None]
  - MUSCLE SPASTICITY [None]
  - NASAL SEPTUM DEVIATION [None]
  - OBSESSIVE THOUGHTS [None]
  - PAIN [None]
  - PNEUMONIA [None]
  - PNEUMOTHORAX [None]
  - POSTNASAL DRIP [None]
  - PUBIC RAMI FRACTURE [None]
  - PYREXIA [None]
  - RASH [None]
  - RHINITIS ALLERGIC [None]
  - SNORING [None]
  - STAPHYLOCOCCAL INFECTION [None]
  - STREPTOCOCCAL INFECTION [None]
  - SUBARACHNOID HAEMORRHAGE [None]
  - TOOTH DISORDER [None]
  - TRAUMATIC BRAIN INJURY [None]
